FAERS Safety Report 5598330-3 (Version None)
Quarter: 2008Q1

REPORT INFORMATION
  Report Type: 
  Country: None (occurrence: None)
  Receive Date: 20080122
  Receipt Date: 20080117
  Transmission Date: 20080703
  Serious: Yes (Other)
  Sender: FDA-Public Use
  Company Number: B0500994A

PATIENT
  Age: 7 Year
  Sex: Female
  Weight: 20 kg

DRUGS (7)
  1. RELENZA [Suspect]
     Indication: INFLUENZA
     Dosage: 10MG TWICE PER DAY
     Route: 055
     Dates: start: 20071221, end: 20071222
  2. ASVERIN [Concomitant]
     Indication: INFLUENZA
     Dosage: .39G PER DAY
     Route: 048
     Dates: start: 20071221
  3. MUCODYNE [Concomitant]
     Indication: INFLUENZA
     Dosage: 1.71G PER DAY
     Route: 048
     Dates: start: 20071221
  4. PERIACTIN [Concomitant]
     Indication: INFLUENZA
     Dosage: .39G PER DAY
     Route: 048
     Dates: start: 20071221
  5. AMOXICILLIN TRIHYDRATE [Concomitant]
     Indication: INFLUENZA
     Dosage: 1.8G PER DAY
     Route: 048
     Dates: start: 20071221
  6. PRIMPERAN INJ [Concomitant]
     Indication: INFLUENZA
     Dosage: 9.9ML PER DAY
     Route: 048
     Dates: start: 20071221
  7. ANHIBA [Concomitant]
     Indication: DRUG USE FOR UNKNOWN INDICATION
     Route: 054
     Dates: start: 20071221

REACTIONS (3)
  - ABNORMAL BEHAVIOUR [None]
  - RESTLESS LEGS SYNDROME [None]
  - SCREAMING [None]
